FAERS Safety Report 12542156 (Version 8)
Quarter: 2017Q1

REPORT INFORMATION
  Report Type: Spontaneous
  Country: JP (occurrence: JP)
  Receive Date: 20160708
  Receipt Date: 20170319
  Transmission Date: 20170428
  Serious: Yes (Hospitalization, Other)
  Sender: FDA-Public Use
  Company Number: PHJP2016JP018441

PATIENT
  Age: 32 Year
  Sex: Female

DRUGS (6)
  1. PLATELETS [Concomitant]
     Active Substance: HUMAN PLATELET, ALLOGENIC
     Dosage: 10 IU, UNK
     Route: 065
  2. BETAMETHASONE. [Concomitant]
     Active Substance: BETAMETHASONE
     Indication: PREMATURE LABOUR
     Dosage: UNK
     Route: 065
  3. RED CELLS CONCENTRATES-LEUKOCYTES REDUCED [Concomitant]
     Indication: RED BLOOD CELL COUNT DECREASED
     Dosage: 2 IU, UNK
     Route: 065
  4. RED CELLS CONCENTRATES-LEUKOCYTES REDUCED [Concomitant]
     Indication: PREMATURE LABOUR
  5. PLATELETS [Concomitant]
     Active Substance: HUMAN PLATELET, ALLOGENIC
     Indication: PLATELET COUNT DECREASED
     Dosage: 20 IU, UNK
     Route: 065
  6. NEORAL [Suspect]
     Active Substance: CYCLOSPORINE
     Indication: APLASTIC ANAEMIA
     Dosage: UNK
     Route: 048

REACTIONS (9)
  - Blood pressure increased [Recovering/Resolving]
  - Pre-eclampsia [Unknown]
  - Maternal exposure during pregnancy [Unknown]
  - Protein urine [Recovering/Resolving]
  - Contraindicated product administered [Unknown]
  - Urine output decreased [Unknown]
  - Red blood cell count decreased [Recovered/Resolved]
  - Premature delivery [Unknown]
  - Weight increased [Unknown]
